FAERS Safety Report 23932545 (Version 1)
Quarter: 2024Q2

REPORT INFORMATION
  Report Type: Spontaneous
  Country: NL (occurrence: NL)
  Receive Date: 20240603
  Receipt Date: 20240603
  Transmission Date: 20240716
  Serious: Yes (Life-Threatening)
  Sender: FDA-Public Use
  Company Number: None

PATIENT
  Age: 55 Year
  Sex: Female
  Weight: 64 kg

DRUGS (4)
  1. DARZALEX [Suspect]
     Active Substance: DARATUMUMAB
     Indication: Plasma cell myeloma
     Dosage: 1800MG SUBCUTANEOUSLY ONCE A WEEK
     Route: 058
     Dates: start: 20240229
  2. VELCADE [Suspect]
     Active Substance: BORTEZOMIB
     Indication: Plasma cell myeloma
     Dosage: INJECTION, 1 MG/MG (MILLIGRAM PER MILLIGRAM),
     Route: 058
     Dates: start: 20240229
  3. DEXAMETHASONE [Suspect]
     Active Substance: DEXAMETHASONE
     Indication: Plasma cell myeloma
     Dosage: 1DD 40 MG
     Route: 065
     Dates: start: 20240229
  4. LENALIDOMIDE [Suspect]
     Active Substance: LENALIDOMIDE
     Indication: Plasma cell myeloma
     Dosage: 1DD 25 MG
     Route: 065
     Dates: start: 20240229

REACTIONS (2)
  - Intestinal perforation [Recovering/Resolving]
  - Cardiac failure [Recovering/Resolving]
